FAERS Safety Report 21361322 (Version 3)
Quarter: 2022Q4

REPORT INFORMATION
  Report Type: Report from Study
  Country: US (occurrence: US)
  Receive Date: 20220921
  Receipt Date: 20221031
  Transmission Date: 20230113
  Serious: Yes (Death, Hospitalization)
  Sender: FDA-Public Use
  Company Number: US-BAYER-2022A122345

PATIENT
  Age: 59 Year
  Sex: Male
  Weight: 97.9 kg

DRUGS (16)
  1. COPANLISIB [Suspect]
     Active Substance: COPANLISIB
     Indication: High-grade B-cell lymphoma
     Dosage: 30 MG ON DAY D1 AND D5
     Route: 042
     Dates: start: 20220819, end: 20220823
  2. ETOPOSIDE [Suspect]
     Active Substance: ETOPOSIDE
     Indication: High-grade B-cell lymphoma
     Dosage: 50 MG/M2, FROM D1-D4, CONTINUOUSLY
     Route: 042
     Dates: start: 20220819, end: 20220822
  3. PREDNISONE [Suspect]
     Active Substance: PREDNISONE
     Indication: High-grade B-cell lymphoma
     Dosage: 60 MG, BID FROM D1-D4
     Route: 048
     Dates: start: 20220819, end: 20220823
  4. VINCRISTINE [Suspect]
     Active Substance: VINCRISTINE
     Indication: High-grade B-cell lymphoma
     Dosage: 0.4 MG/M2, FROM D1-D4 CONTINUOUSLY
     Route: 042
     Dates: start: 20220819, end: 20220822
  5. ADRIAMYCIN [Suspect]
     Active Substance: DOXORUBICIN HYDROCHLORIDE
     Indication: High-grade B-cell lymphoma
     Dosage: 10 MG/M2 FROM D1-D4
     Route: 042
     Dates: start: 20220819, end: 20220822
  6. CYCLOPHOSPHAMIDE [Suspect]
     Active Substance: CYCLOPHOSPHAMIDE
     Indication: High-grade B-cell lymphoma
     Dosage: 750 MG/M2 ON D5
     Route: 042
     Dates: start: 20220823, end: 20220823
  7. RITUXIMAB [Suspect]
     Active Substance: RITUXIMAB
     Indication: High-grade B-cell lymphoma
     Dosage: 375 MG/M2 ON D1
     Route: 042
     Dates: start: 20220819, end: 20220819
  8. ACYCLOVIR [Concomitant]
     Active Substance: ACYCLOVIR
     Dosage: 400 MG, BID
     Route: 048
     Dates: start: 20220818
  9. MAGNESIUM OXIDE [Concomitant]
     Active Substance: MAGNESIUM OXIDE
     Dosage: 200 MG, BID
     Route: 048
     Dates: start: 20220818
  10. LEVOTHYROXINE [Concomitant]
     Active Substance: LEVOTHYROXINE
     Dosage: 125 ?G, QD
     Route: 048
     Dates: start: 20220819
  11. PANTOPRAZOLE [Concomitant]
     Active Substance: PANTOPRAZOLE
     Dosage: 40 MG, QD
     Route: 048
     Dates: start: 20220819
  12. PROCHLORPERAZINE [Concomitant]
     Active Substance: PROCHLORPERAZINE
     Dosage: 10 MG, QID PRN
     Route: 048
     Dates: start: 20220819
  13. DOCUSATE SODIUM\SENNOSIDES A AND B [Concomitant]
     Active Substance: DOCUSATE SODIUM\SENNOSIDES A AND B
     Dosage: 50/8.6 MG (TWO TABLETS), QD
     Route: 048
  14. ACETAMINOPHEN [Concomitant]
     Active Substance: ACETAMINOPHEN
     Dosage: 1000 MG, TID
     Route: 048
     Dates: start: 20220824
  15. GABAPENTIN [Concomitant]
     Active Substance: GABAPENTIN
     Dosage: 300 MG, BID
     Route: 048
     Dates: start: 20220824
  16. HYDROMORPHONE [Concomitant]
     Active Substance: HYDROMORPHONE
     Dosage: 300 MG, BID
     Route: 048
     Dates: start: 20220824

REACTIONS (4)
  - Multiple organ dysfunction syndrome [Fatal]
  - Platelet count decreased [Not Recovered/Not Resolved]
  - Muscular weakness [Not Recovered/Not Resolved]
  - Neutropenia [Not Recovered/Not Resolved]

NARRATIVE: CASE EVENT DATE: 20220826
